FAERS Safety Report 9561038 (Version 1)
Quarter: 2013Q3

REPORT INFORMATION
  Report Type: Spontaneous
  Country: US (occurrence: US)
  Receive Date: 20130927
  Receipt Date: 20130927
  Transmission Date: 20140515
  Serious: No
  Sender: FDA-Public Use
  Company Number: US-BIOGENIDEC-2013BI056182

PATIENT
  Age: 47 Year
  Sex: Male

DRUGS (2)
  1. TECFIDERA [Suspect]
     Indication: PRODUCT USED FOR UNKNOWN INDICATION
     Route: 048
     Dates: start: 20130604, end: 20130610
  2. TECFIDERA [Suspect]
     Indication: PRODUCT USED FOR UNKNOWN INDICATION
     Route: 048
     Dates: start: 20130611

REACTIONS (12)
  - Cognitive disorder [Unknown]
  - Gastric disorder [Unknown]
  - Fatigue [Unknown]
  - Insomnia [Unknown]
  - Mobility decreased [Unknown]
  - Speech disorder [Unknown]
  - Hemiparesis [Unknown]
  - Lethargy [Unknown]
  - Amnesia [Unknown]
  - Nausea [Unknown]
  - Diarrhoea [Unknown]
  - Flushing [Unknown]
